FAERS Safety Report 8925129 (Version 1)
Quarter: 2012Q4

REPORT INFORMATION
  Report Type: 
  Country: US (occurrence: US)
  Receive Date: 20121126
  Receipt Date: 20121126
  Transmission Date: 20130627
  Serious: No
  Sender: FDA-Public Use
  Company Number: US-TEVA-370381USA

PATIENT
  Sex: Female

DRUGS (1)
  1. NUVIGIL [Suspect]
     Dosage: 150 mg  twice a day
     Dates: start: 20120828

REACTIONS (1)
  - Headache [Not Recovered/Not Resolved]
